FAERS Safety Report 12761923 (Version 2)
Quarter: 2016Q4

REPORT INFORMATION
  Report Type: Spontaneous
  Country: US (occurrence: US)
  Receive Date: 20160920
  Receipt Date: 20161012
  Transmission Date: 20170207
  Serious: No
  Sender: FDA-Public Use
  Company Number: US-PFIZER INC-2016294107

PATIENT
  Age: 73 Year
  Sex: Female

DRUGS (3)
  1. LETROZOLE. [Suspect]
     Active Substance: LETROZOLE
     Dosage: UNK
  2. IBRANCE [Suspect]
     Active Substance: PALBOCICLIB
     Dosage: 100 MG, CYCLIC (21-DAY CYCLE)
     Dates: start: 20160608
  3. IBRANCE [Suspect]
     Active Substance: PALBOCICLIB
     Dosage: 125 MG, CYCLIC (21-DAY CYCLE)

REACTIONS (11)
  - White blood cell count decreased [Unknown]
  - Asthenia [Unknown]
  - Arthralgia [Unknown]
  - Somnolence [Unknown]
  - Nausea [Unknown]
  - Diarrhoea [Unknown]
  - Rash [Recovered/Resolved]
  - Fatigue [Unknown]
  - Back pain [Unknown]
  - Epinephrine increased [Unknown]
  - Platelet count decreased [Unknown]
